FAERS Safety Report 22782852 (Version 4)
Quarter: 2024Q1

REPORT INFORMATION
  Report Type: Spontaneous
  Country: JP (occurrence: JP)
  Receive Date: 20230803
  Receipt Date: 20240206
  Transmission Date: 20240409
  Serious: No
  Sender: FDA-Public Use
  Company Number: JP-BRAINTREE LABORATORIES, INC.-2023BTE00437

PATIENT
  Age: 82 Year
  Sex: Female

DRUGS (3)
  1. MAGNESIUM SULFATE\POTASSIUM SULFATE\SODIUM SULFATE [Suspect]
     Active Substance: MAGNESIUM SULFATE\POTASSIUM SULFATE\SODIUM SULFATE
     Indication: Colonoscopy
     Dosage: 360 ML/ DAY
     Route: 048
     Dates: start: 20230518, end: 20230518
  2. SODIUM PICOSULFATE [Concomitant]
     Active Substance: SODIUM PICOSULFATE
     Indication: Colonoscopy
     Dosage: 1 DOSAGE FORM / DAY
     Route: 048
     Dates: start: 20230517, end: 20230517
  3. PURSENNIDE [SENNA ALEXANDRINA LEAF] [Concomitant]
     Indication: Colonoscopy
     Dosage: 2 DOSAGE FORM / DAY
     Route: 048
     Dates: start: 20230517, end: 20230517

REACTIONS (2)
  - Large intestinal stenosis [Unknown]
  - Nausea [Unknown]

NARRATIVE: CASE EVENT DATE: 20230518
